FAERS Safety Report 9142109 (Version 2)
Quarter: 2013Q3

REPORT INFORMATION
  Report Type: Spontaneous
  Country: US (occurrence: US)
  Receive Date: 20130305
  Receipt Date: 20130904
  Transmission Date: 20140515
  Serious: No
  Sender: FDA-Public Use
  Company Number: US-AMGEN-USASP2013013088

PATIENT
  Age: 30 Year
  Sex: Female
  Weight: 90.7 kg

DRUGS (4)
  1. ENBREL [Suspect]
     Indication: RHEUMATOID ARTHRITIS
     Dosage: 50 MG, TWICE IN 1 MONTH
     Route: 065
     Dates: start: 20091012
  2. FOLIC ACID [Concomitant]
     Dosage: UNK UNK, QD
     Route: 048
     Dates: start: 20110715
  3. PRENATAL VITAMINS                  /02014401/ [Concomitant]
     Dosage: UNK UNK, QD
     Route: 048
     Dates: start: 20110715, end: 20120401
  4. IRON [Concomitant]
     Dosage: UNK
     Route: 048
     Dates: start: 201111, end: 20120720

REACTIONS (4)
  - Malaise [Recovered/Resolved]
  - Gestational hypertension [Unknown]
  - Induced labour [Unknown]
  - Pre-eclampsia [Unknown]
